FAERS Safety Report 4758642-X (Version None)
Quarter: 2005Q3

REPORT INFORMATION
  Report Type: 
  Country: None (occurrence: None)
  Receive Date: 20050829
  Receipt Date: 20050815
  Transmission Date: 20060218
  Serious: Yes (Other)
  Sender: FDA-Public Use
  Company Number: B0391039A

PATIENT
  Age: 55 Year
  Sex: Female

DRUGS (2)
  1. METHADONE HYDROCHLORIDE (FORMULATION UNKNOWN) (METHADONE HYDROCHLORIDE [Suspect]
     Dosage: ORAL
     Route: 048
  2. ZOFRAN [Suspect]
     Dosage: UNKNOWN
     Route: 065

REACTIONS (2)
  - ELECTROCARDIOGRAM QT PROLONGED [None]
  - TORSADE DE POINTES [None]
